FAERS Safety Report 18342001 (Version 1)
Quarter: 2020Q4

REPORT INFORMATION
  Report Type: Spontaneous
  Country: US (occurrence: US)
  Receive Date: 20201005
  Receipt Date: 20201005
  Transmission Date: 20210113
  Serious: Yes (Other)
  Sender: FDA-Public Use
  Company Number: US-SA-2020SA270646

PATIENT

DRUGS (2)
  1. XOLIAR [Suspect]
     Active Substance: OMALIZUMAB
  2. DUPIXENT [Suspect]
     Active Substance: DUPILUMAB

REACTIONS (2)
  - Off label use [Unknown]
  - Neuropathy peripheral [Unknown]
